FAERS Safety Report 9791462 (Version 1)
Quarter: 2014Q1

REPORT INFORMATION
  Report Type: Report from Study
  Country: IN (occurrence: IN)
  Receive Date: 20140101
  Receipt Date: 20140101
  Transmission Date: 20141002
  Serious: Yes (Hospitalization)
  Sender: FDA-Public Use
  Company Number: PHHY2013IN153574

PATIENT
  Age: 60 Year
  Sex: Female

DRUGS (3)
  1. ACLASTA [Suspect]
     Indication: OSTEOPOROSIS
     Dosage: 5 MG, PER 100 ML
     Route: 042
  2. ACLASTA [Suspect]
     Dosage: 5 MG, PER 100 ML
     Route: 042
  3. ACLASTA [Suspect]
     Dosage: 5 MG, PER 100 ML
     Route: 042
     Dates: start: 20131106

REACTIONS (1)
  - Lung disorder [Unknown]
